FAERS Safety Report 9758281 (Version 6)
Quarter: 2014Q4

REPORT INFORMATION
  Report Type: Report from Study
  Country: DE (occurrence: DE)
  Receive Date: 20131216
  Receipt Date: 20141029
  Transmission Date: 20150529
  Serious: Yes (Hospitalization)
  Sender: FDA-Public Use
  Company Number: DE-BAYER-2013-151768

PATIENT
  Age: 66 Year
  Sex: Female
  Weight: 56 kg

DRUGS (20)
  1. STIVARGA [Suspect]
     Active Substance: REGORAFENIB
     Indication: COLORECTAL CANCER METASTATIC
     Dosage: 80 MG, QD
     Route: 048
     Dates: start: 20131116, end: 20131119
  2. STIVARGA [Suspect]
     Active Substance: REGORAFENIB
     Indication: COLORECTAL CANCER METASTATIC
     Dosage: 80 MG
     Route: 048
     Dates: start: 20140123, end: 20140202
  3. STIVARGA [Suspect]
     Active Substance: REGORAFENIB
     Indication: COLORECTAL CANCER METASTATIC
     Dosage: 80 MG
     Route: 048
     Dates: start: 20140203, end: 20140209
  4. LAXOBERAL [Concomitant]
     Active Substance: SODIUM PICOSULFATE
  5. STIVARGA [Suspect]
     Active Substance: REGORAFENIB
     Indication: COLORECTAL CANCER METASTATIC
     Dosage: 160MG
     Route: 048
     Dates: start: 20131122, end: 20131202
  6. STIVARGA [Suspect]
     Active Substance: REGORAFENIB
     Indication: COLORECTAL CANCER METASTATIC
     Dosage: 120MG
     Route: 048
     Dates: start: 20140113, end: 20140114
  7. STIVARGA [Suspect]
     Active Substance: REGORAFENIB
     Indication: COLORECTAL CANCER METASTATIC
     Dosage: 80MG
     Route: 048
     Dates: start: 20140115, end: 20140121
  8. STIVARGA [Suspect]
     Active Substance: REGORAFENIB
     Indication: COLORECTAL CANCER METASTATIC
     Dosage: 80MG
     Route: 048
     Dates: start: 20140213, end: 20140302
  9. STIVARGA [Suspect]
     Active Substance: REGORAFENIB
     Indication: COLORECTAL CANCER METASTATIC
     Dosage: 80 MG AND 120 MG
     Route: 048
     Dates: start: 20140310, end: 20140330
  10. STIVARGA [Suspect]
     Active Substance: REGORAFENIB
     Indication: COLORECTAL CANCER METASTATIC
     Dosage: 120 MG AND 80 MG
     Route: 048
     Dates: start: 20140605, end: 20140625
  11. NOVALGIN [Concomitant]
     Active Substance: METAMIZOLE SODIUM
  12. STIVARGA [Suspect]
     Active Substance: REGORAFENIB
     Indication: COLORECTAL CANCER METASTATIC
     Dosage: 120MG
     Route: 048
     Dates: start: 20131120, end: 20131121
  13. STIVARGA [Suspect]
     Active Substance: REGORAFENIB
     Indication: COLORECTAL CANCER METASTATIC
     Dosage: 120MG
     Route: 048
     Dates: start: 20140602, end: 20140626
  14. BELOC ZOK [Concomitant]
     Active Substance: METOPROLOL SUCCINATE
     Dosage: DAILY DOSE 47.5 MG
     Dates: start: 2012, end: 20140709
  15. LYRICA [Concomitant]
     Active Substance: PREGABALIN
  16. STIVARGA [Suspect]
     Active Substance: REGORAFENIB
     Indication: COLORECTAL CANCER METASTATIC
     Dosage: 80 MG AND 120 MG
     Route: 048
     Dates: start: 20140407, end: 20140427
  17. PANTOZOL [Concomitant]
     Active Substance: PANTOPRAZOLE SODIUM
  18. BELOC ZOK [Concomitant]
     Active Substance: METOPROLOL SUCCINATE
     Dosage: DAILY DOSE 142.5 MG
     Dates: start: 20140710
  19. RAMIPRIL [RAMIPRIL] [Concomitant]
  20. ONDANSETRON [Concomitant]
     Active Substance: ONDANSETRON
     Indication: NAUSEA

REACTIONS (3)
  - Atrial flutter [Recovered/Resolved]
  - Cholecystitis [Recovered/Resolved]
  - Cholecystitis [Recovered/Resolved]

NARRATIVE: CASE EVENT DATE: 20131203
